FAERS Safety Report 8796699 (Version 1)
Quarter: 2012Q4

REPORT INFORMATION
  Report Type: 
  Country: US (occurrence: US)
  Receive Date: 20120917
  Receipt Date: 20120917
  Transmission Date: 20130627
  Serious: No
  Sender: FDA-Public Use
  Company Number: US-ABBOTT-12P-163-0951194-00

PATIENT
  Sex: Male
  Weight: 99.88 kg

DRUGS (6)
  1. DEPAKOTE [Suspect]
     Indication: EPILEPSY
     Route: 048
     Dates: start: 201205
  2. LEVOXYL [Concomitant]
     Indication: HYPOTHYROIDISM
  3. LAMICTAL [Concomitant]
     Indication: CONVULSION
  4. PRIMODONE [Concomitant]
     Indication: CONVULSION
  5. CARNITINE [Concomitant]
     Indication: HEPATIC FUNCTION ABNORMAL
  6. FISH OIL [Concomitant]
     Indication: IMMUNE SYSTEM DISORDER

REACTIONS (2)
  - Stomatitis [Not Recovered/Not Resolved]
  - Wrong technique in drug usage process [Unknown]
